FAERS Safety Report 9476033 (Version 1)
Quarter: 2013Q3

REPORT INFORMATION
  Report Type: Spontaneous
  Country: CA (occurrence: None)
  Receive Date: 20130821
  Receipt Date: 20130821
  Transmission Date: 20140515
  Serious: Yes (Life-Threatening)
  Sender: FDA-Public Use
  Company Number: 2013P1018205

PATIENT
  Age: 37 Year
  Sex: Female
  Weight: 58 kg

DRUGS (6)
  1. MORPHINE [Suspect]
     Indication: PROCEDURAL PAIN
     Route: 037
  2. MORPHINE [Suspect]
     Indication: CAESAREAN SECTION
     Route: 037
  3. FENTANYL [Suspect]
     Indication: CAESAREAN SECTION
     Route: 037
  4. BUPIVACAINE [Concomitant]
  5. KETOROLAC [Concomitant]
  6. ACETAMINOPHEN [Concomitant]

REACTIONS (3)
  - Respiratory depression [None]
  - Blood pressure increased [None]
  - Loss of consciousness [None]
